FAERS Safety Report 8351876-7 (Version None)
Quarter: 2012Q2

REPORT INFORMATION
  Report Type: 
  Country: None (occurrence: None)
  Receive Date: 20120510
  Receipt Date: 20120510
  Transmission Date: 20120825
  Serious: Yes (Hospitalization)
  Sender: FDA-Public Use
  Company Number: None

PATIENT
  Age: 57 Year
  Sex: Female
  Weight: 52.1637 kg

DRUGS (1)
  1. CETIRIZINE HCL [Suspect]
     Indication: SEASONAL ALLERGY
     Dosage: 1-10 MG PILL 1 EVERY 24 HRS.
     Dates: start: 20120429

REACTIONS (6)
  - RESTLESSNESS [None]
  - CONFUSIONAL STATE [None]
  - FEELING ABNORMAL [None]
  - ASTHENIA [None]
  - NAUSEA [None]
  - HEADACHE [None]
